FAERS Safety Report 18248101 (Version 1)
Quarter: 2020Q3

REPORT INFORMATION
  Report Type: Spontaneous
  Country: US (occurrence: US)
  Receive Date: 20200909
  Receipt Date: 20200909
  Transmission Date: 20201103
  Serious: No
  Sender: FDA-Public Use
  Company Number: US-PERRIGO-20US009558

PATIENT
  Age: 43 Year
  Sex: Female
  Weight: 90.7 kg

DRUGS (2)
  1. ALBUTEROL SULFATE. [Suspect]
     Active Substance: ALBUTEROL SULFATE
     Indication: ASTHMA
     Dosage: 180 MCG, UP TO 8 TIMES DAILY, PRN
     Route: 055
     Dates: start: 202006, end: 20200621
  2. ALBUTEROL SULFATE. [Suspect]
     Active Substance: ALBUTEROL SULFATE
     Dosage: UNKNOWN, UP TO 8 TIMES DAILY, PRN
     Route: 055
     Dates: start: 20200622, end: 20200627

REACTIONS (3)
  - Device delivery system issue [Recovered/Resolved]
  - Inappropriate schedule of product administration [Recovered/Resolved]
  - Incorrect dose administered [Recovered/Resolved with Sequelae]

NARRATIVE: CASE EVENT DATE: 202006
